FAERS Safety Report 15729410 (Version 3)
Quarter: 2019Q1

REPORT INFORMATION
  Report Type: Spontaneous
  Country: US (occurrence: US)
  Receive Date: 20181217
  Receipt Date: 20190130
  Transmission Date: 20190417
  Serious: Yes (Hospitalization, Other)
  Sender: FDA-Public Use
  Company Number: US-GLAXOSMITHKLINE-US2018225228

PATIENT
  Age: 65 Year
  Sex: Female

DRUGS (1)
  1. VENTOLIN HFA [Suspect]
     Active Substance: ALBUTEROL SULFATE
     Indication: PRODUCT USED FOR UNKNOWN INDICATION
     Dosage: 2 PUFF(S), Z
     Route: 055

REACTIONS (10)
  - Product complaint [Unknown]
  - Carotid artery occlusion [Unknown]
  - Limb injury [Not Recovered/Not Resolved]
  - Injection site pruritus [Unknown]
  - Injection site swelling [Recovered/Resolved]
  - Dyspnoea [Recovered/Resolved]
  - Arterial therapeutic procedure [Unknown]
  - Thrombosis [Recovered/Resolved with Sequelae]
  - Product storage error [Unknown]
  - Stent placement [Unknown]

NARRATIVE: CASE EVENT DATE: 2018
